FAERS Safety Report 5879735-X (Version None)
Quarter: 2008Q3

REPORT INFORMATION
  Report Type: 
  Country: None (occurrence: None)
  Receive Date: 20080912
  Receipt Date: 20080909
  Transmission Date: 20090109
  Serious: Yes (Disabling, Congenital Anomaly, Other)
  Sender: FDA-Public Use
  Company Number: GB-BRISTOL-MYERS SQUIBB COMPANY-14328561

PATIENT
  Sex: Male
  Weight: 2 kg

DRUGS (2)
  1. ABILIFY [Suspect]
     Route: 064
  2. TRIFLUOPERAZINE [Concomitant]
     Route: 064

REACTIONS (4)
  - CONGENITAL ABSENCE OF VERTEBRA [None]
  - OESOPHAGEAL ATRESIA [None]
  - PREGNANCY [None]
  - TRACHEO-OESOPHAGEAL FISTULA [None]
